FAERS Safety Report 10421023 (Version 1)
Quarter: 2014Q3

REPORT INFORMATION
  Report Type: Spontaneous
  Country: US (occurrence: None)
  Receive Date: 20140722
  Receipt Date: 20140722
  Transmission Date: 20150326
  Serious: Yes (Other)
  Sender: FDA-Public Use
  Company Number: 163-10004-14063029

PATIENT
  Age: 43 Year
  Sex: Female
  Weight: 101.61 kg

DRUGS (11)
  1. SOVELLA (OTHER THERAPEUTIC PRODUCTS) [Concomitant]
  2. OTEZLA [Suspect]
     Active Substance: APREMILAST
     Indication: PSORIATIC ARTHROPATHY
     Route: 048
     Dates: start: 20140505
  3. TOPAMAX [Concomitant]
     Active Substance: TOPIRAMATE
  4. CLONOPIN [Concomitant]
     Active Substance: CLONAZEPAM
  5. WELLBUTRIN [Concomitant]
     Active Substance: BUPROPION HYDROCHLORIDE
  6. NEUTONTIN (GABAPENTIN) [Concomitant]
  7. VITAMIN D (ERGOCALCIFEROL) [Concomitant]
     Active Substance: ERGOCALCIFEROL
  8. PERCOCET (OXYCOCET) [Concomitant]
  9. PSORIATANE (OTHER THERAPEUTIC PRODUCTS) [Concomitant]
  10. FOLIC ACID. [Concomitant]
     Active Substance: FOLIC ACID
  11. LOSARTAN [Concomitant]
     Active Substance: LOSARTAN

REACTIONS (3)
  - Nausea [None]
  - Migraine [None]
  - Diarrhoea [None]

NARRATIVE: CASE EVENT DATE: 201406
